FAERS Safety Report 4551660-6 (Version None)
Quarter: 2005Q1

REPORT INFORMATION
  Report Type: 
  Country: None (occurrence: None)
  Receive Date: 20050111
  Receipt Date: 20050103
  Transmission Date: 20050727
  Serious: Yes (Other)
  Sender: FDA-Public Use
  Company Number: 2005001335

PATIENT
  Age: 42 Year
  Sex: Female
  Weight: 47.6277 kg

DRUGS (2)
  1. DEPO-PROVERA [Suspect]
     Indication: ILL-DEFINED DISORDER
     Dosage: SEE IMAGE
     Route: 030
     Dates: start: 19941101, end: 19941101
  2. DEPO-PROVERA [Suspect]
     Indication: ILL-DEFINED DISORDER
     Dosage: SEE IMAGE
     Route: 030
     Dates: start: 20041025, end: 20041025

REACTIONS (7)
  - ABASIA [None]
  - AMENORRHOEA [None]
  - BALANCE DISORDER [None]
  - IMMUNE SYSTEM DISORDER [None]
  - NASAL CYST [None]
  - SINUSITIS [None]
  - TYMPANIC MEMBRANE PERFORATION [None]
